FAERS Safety Report 4350736-6 (Version None)
Quarter: 2004Q2

REPORT INFORMATION
  Report Type: 
  Country: None (occurrence: None)
  Receive Date: 20040428
  Receipt Date: 20040422
  Transmission Date: 20050107
  Serious: Yes (Death)
  Sender: FDA-Public Use
  Company Number: THQ2003A01421

PATIENT
  Age: 53 Year
  Sex: Female

DRUGS (2)
  1. LANSOPRAZOLE [Suspect]
     Indication: DUODENITIS
     Route: 048
  2. LANSOPRAZOLE [Suspect]
     Indication: GASTRITIS
     Route: 048

REACTIONS (2)
  - ASPIRATION [None]
  - EPILEPSY [None]
